FAERS Safety Report 20336437 (Version 3)
Quarter: 2022Q1

REPORT INFORMATION
  Report Type: Spontaneous
  Country: US (occurrence: US)
  Receive Date: 20220114
  Receipt Date: 20220214
  Transmission Date: 20220423
  Serious: Yes (Death, Other)
  Sender: FDA-Public Use
  Company Number: US-PFIZER INC-202200029075

PATIENT
  Age: 75 Year
  Sex: Male
  Weight: 71.67 kg

DRUGS (4)
  1. VYNDAMAX [Suspect]
     Active Substance: TAFAMIDIS
     Indication: Amyloidosis
     Dosage: 61 MG, 1X/DAY
     Route: 048
     Dates: start: 2020, end: 20220105
  2. VYNDAMAX [Suspect]
     Active Substance: TAFAMIDIS
     Indication: Parkinson^s disease
  3. VYNDAMAX [Suspect]
     Active Substance: TAFAMIDIS
     Indication: Cardiac failure congestive
  4. VYNDAMAX [Suspect]
     Active Substance: TAFAMIDIS
     Indication: Chronic kidney disease

REACTIONS (2)
  - Death [Fatal]
  - Body height decreased [Unknown]
